FAERS Safety Report 22049902 (Version 1)
Quarter: 2023Q1

REPORT INFORMATION
  Report Type: Report from Study
  Country: IL (occurrence: IL)
  Receive Date: 20230301
  Receipt Date: 20230301
  Transmission Date: 20230417
  Serious: Yes (Hospitalization, Other)
  Sender: FDA-Public Use
  Company Number: IL-BAXTER-2023BAX014078

PATIENT
  Age: 49 Year
  Sex: Female
  Weight: 89.2 kg

DRUGS (15)
  1. DOXORUBICIN [Suspect]
     Active Substance: DOXORUBICIN
     Indication: B-cell lymphoma
     Dosage: 50 MG/M2, Q3W
     Route: 042
     Dates: start: 20221113
  2. CYCLOPHOSPHAMIDE [Suspect]
     Active Substance: CYCLOPHOSPHAMIDE
     Indication: B-cell lymphoma
     Dosage: 750 MG/M2, Q3W
     Route: 042
     Dates: start: 20221113
  3. EPCORITAMAB [Suspect]
     Active Substance: EPCORITAMAB
     Indication: B-cell lymphoma
     Dosage: 0.16 MG, PRIMING DOSE
     Route: 058
     Dates: start: 20221113, end: 20221113
  4. EPCORITAMAB [Suspect]
     Active Substance: EPCORITAMAB
     Dosage: 0.8 MG, INTERMEDIATE DOSE
     Route: 058
     Dates: start: 20221120, end: 20221120
  5. EPCORITAMAB [Suspect]
     Active Substance: EPCORITAMAB
     Dosage: 24 MG, DAYS 1, 8, 15 OF CYCLES 2-4, AND DAY 1 OF CYCLES 5-86
     Route: 058
     Dates: start: 20221130
  6. POLATUZUMAB VEDOTIN [Suspect]
     Active Substance: POLATUZUMAB VEDOTIN
     Indication: B-cell lymphoma
     Dosage: 1.8 MG/KG, Q3W
     Route: 042
     Dates: start: 20221113
  7. PREDNISONE [Suspect]
     Active Substance: PREDNISONE
     Indication: B-cell lymphoma
     Dosage: 100 MG, QD, DAYS 1-5 OF EACH CYCLE
     Route: 048
     Dates: start: 20221113
  8. RITUXIMAB [Suspect]
     Active Substance: RITUXIMAB
     Indication: B-cell lymphoma
     Dosage: 375 MG/M2, Q3W
     Route: 042
     Dates: start: 20221113
  9. TRAMADOL [Concomitant]
     Active Substance: TRAMADOL
     Indication: Lumbar vertebral fracture
     Dosage: 100 MG, QD
     Route: 048
     Dates: start: 20221012
  10. PREDNISONE [Concomitant]
     Active Substance: PREDNISONE
     Indication: Prophylaxis
     Dosage: 100 MG
     Route: 048
     Dates: start: 20221113
  11. LORATADINE [Concomitant]
     Active Substance: LORATADINE
     Indication: Prophylaxis
     Dosage: 10 MG, ONCE A WEEK
     Route: 048
     Dates: start: 20221113
  12. ACETAMINOPHEN [Concomitant]
     Active Substance: ACETAMINOPHEN
     Indication: Prophylaxis
     Dosage: 1000 MG, ONCE A WEEK
     Route: 048
     Dates: start: 20221113
  13. CEFTRIAXONE [Concomitant]
     Active Substance: CEFTRIAXONE
     Indication: Infection prophylaxis
     Dosage: 2 G, QD
     Route: 042
     Dates: start: 20221127, end: 20221127
  14. Azenil [Concomitant]
     Indication: Infection prophylaxis
     Dosage: 500 MG, QD
     Route: 048
     Dates: start: 20221127, end: 20221129
  15. PROMETHAZINE [Concomitant]
     Active Substance: PROMETHAZINE HYDROCHLORIDE
     Indication: Prophylaxis
     Dosage: 50 MG, ONCE A WEEK
     Route: 048
     Dates: start: 20221113

REACTIONS (3)
  - Cytokine release syndrome [Recovered/Resolved]
  - Pyrexia [Recovered/Resolved]
  - Discomfort [Recovered/Resolved]

NARRATIVE: CASE EVENT DATE: 20221130
